FAERS Safety Report 8921507 (Version 1)
Quarter: 2012Q4

REPORT INFORMATION
  Report Type: 
  Country: US (occurrence: US)
  Receive Date: 20121121
  Receipt Date: 20121121
  Transmission Date: 20130627
  Serious: No
  Sender: FDA-Public Use
  Company Number: US-009507513-1211USA008094

PATIENT
  Sex: Female

DRUGS (2)
  1. CLARITIN-D 12 HOUR [Suspect]
     Indication: PRODUCT USED FOR UNKNOWN INDICATION
     Dosage: 5 mg, hs
     Route: 048
  2. CLARITIN-D 12 HOUR [Suspect]
     Dosage: 5 mg, Once
     Route: 048
     Dates: start: 20120921

REACTIONS (1)
  - Drug ineffective [Unknown]
